FAERS Safety Report 13497798 (Version 1)
Quarter: 2017Q2

REPORT INFORMATION
  Report Type: Spontaneous
  Country: US (occurrence: US)
  Receive Date: 20170501
  Receipt Date: 20170501
  Transmission Date: 20170830
  Serious: No
  Sender: FDA-Public Use
  Company Number: US-ASTRAZENECA-2017SE42769

PATIENT
  Age: 585 Month
  Sex: Female
  Weight: 81.6 kg

DRUGS (6)
  1. VICODIN [Concomitant]
     Active Substance: ACETAMINOPHEN\HYDROCODONE BITARTRATE
     Indication: PAIN
     Dosage: 5MG/325 MG, TWO TIMES A DAY
     Route: 048
  2. LASIX [Concomitant]
     Active Substance: FUROSEMIDE
     Indication: OEDEMA PERIPHERAL
     Route: 048
  3. MOVANTIK [Suspect]
     Active Substance: NALOXEGOL OXALATE
     Indication: CONSTIPATION
     Route: 048
     Dates: start: 2016
  4. METHADONE [Concomitant]
     Active Substance: METHADONE HYDROCHLORIDE
     Indication: PAIN
     Route: 048
  5. PAXIL [Concomitant]
     Active Substance: PAROXETINE HYDROCHLORIDE
     Indication: DEPRESSION
     Route: 048
  6. ALDACTONE [Concomitant]
     Active Substance: SPIRONOLACTONE
     Indication: DIURETIC THERAPY
     Route: 048

REACTIONS (5)
  - Insomnia [Not Recovered/Not Resolved]
  - Gastrointestinal motility disorder [Recovered/Resolved]
  - Drug dose omission [Unknown]
  - Urine analysis abnormal [Unknown]
  - Hypokinesia [Not Recovered/Not Resolved]

NARRATIVE: CASE EVENT DATE: 201702
